FAERS Safety Report 4355480-7 (Version None)
Quarter: 2004Q2

REPORT INFORMATION
  Report Type: 
  Country: None (occurrence: None)
  Receive Date: 20040505
  Receipt Date: 20030416
  Transmission Date: 20050107
  Serious: Yes (Death, Life-Threatening, Hospitalization)
  Sender: FDA-Public Use
  Company Number: NARC20030002

PATIENT
  Age: 33 Year
  Sex: Female
  Weight: 72 kg

DRUGS (3)
  1. NARCAN [Suspect]
     Indication: COMA
     Dosage: 0.4 MG ONCE IM
     Dates: start: 20001031, end: 20001031
  2. NUBAIN [Suspect]
     Indication: LABOUR PAIN
     Dosage: 5 MG ONCE SUBCU
     Route: 058
     Dates: start: 20001031, end: 20001031
  3. AMOXICILLIN [Concomitant]

REACTIONS (5)
  - BRADYCARDIA [None]
  - CARDIAC ARREST [None]
  - ENCEPHALOPATHY [None]
  - HYPOTENSION [None]
  - PULMONARY OEDEMA [None]
